FAERS Safety Report 13371457 (Version 2)
Quarter: 2017Q2

REPORT INFORMATION
  Report Type: Report from Study
  Country: US (occurrence: US)
  Receive Date: 20170324
  Receipt Date: 20170412
  Transmission Date: 20170830
  Serious: No
  Sender: FDA-Public Use
  Company Number: US-JAZZ-2017-US-003038

PATIENT
  Sex: Female

DRUGS (32)
  1. ATIVAN [Concomitant]
     Active Substance: LORAZEPAM
  2. XYREM [Suspect]
     Active Substance: SODIUM OXYBATE
     Dosage: DOSE ADJUSTMENT
     Route: 048
     Dates: start: 201301, end: 201701
  3. RED YEAST RICE [Concomitant]
     Active Substance: DIETARY SUPPLEMENT
  4. EFFEXOR XR [Concomitant]
     Active Substance: VENLAFAXINE HYDROCHLORIDE
  5. PROAIR HFA [Concomitant]
     Active Substance: ALBUTEROL SULFATE
  6. TRAZODONE [Concomitant]
     Active Substance: TRAZODONE HYDROCHLORIDE
  7. CINNAMON                           /01647501/ [Concomitant]
     Active Substance: CINNAMON
  8. IBUPROFEN. [Concomitant]
     Active Substance: IBUPROFEN
  9. RITALIN [Concomitant]
     Active Substance: METHYLPHENIDATE HYDROCHLORIDE
  10. LAMICTAL [Concomitant]
     Active Substance: LAMOTRIGINE
  11. VITAMIN D                          /00107901/ [Concomitant]
     Active Substance: ERGOCALCIFEROL
  12. VITAMIN D                          /00107901/ [Concomitant]
     Active Substance: ERGOCALCIFEROL
  13. AMLODIPINE BESYLATE. [Concomitant]
     Active Substance: AMLODIPINE BESYLATE
  14. YUCCA [Concomitant]
  15. FOLIC ACID. [Concomitant]
     Active Substance: FOLIC ACID
  16. VITAMIN B COMPLEX [Concomitant]
     Active Substance: CYANOCOBALAMIN\DEXPANTHENOL\NIACINAMIDE\PYRIDOXINE HYDROCHLORIDE\RIBOFLAVIN 5^-PHOSPHATE SODIUM\THIAMINE HYDROCHLORIDE\VITAMIN B COMPLEX
  17. GABAPENTIN. [Concomitant]
     Active Substance: GABAPENTIN
  18. GLUCOSAMINE + CHONDROITIN          /01430901/ [Concomitant]
  19. KLONOPIN [Concomitant]
     Active Substance: CLONAZEPAM
  20. FISH OIL [Concomitant]
     Active Substance: FISH OIL
  21. LORAZEPAM. [Concomitant]
     Active Substance: LORAZEPAM
  22. MILK THISTLE EXTRACT [Concomitant]
  23. XOPENEX HFA [Concomitant]
     Active Substance: LEVALBUTEROL TARTRATE
  24. TIZANIDINE HCL [Suspect]
     Active Substance: TIZANIDINE HYDROCHLORIDE
     Indication: PRODUCT USED FOR UNKNOWN INDICATION
     Dosage: UNK
     Dates: start: 20151007, end: 201510
  25. BISACODYL. [Concomitant]
     Active Substance: BISACODYL
  26. OMEPRAZOLE. [Concomitant]
     Active Substance: OMEPRAZOLE
  27. ZYRTEC [Concomitant]
     Active Substance: CETIRIZINE HYDROCHLORIDE
  28. XYREM [Suspect]
     Active Substance: SODIUM OXYBATE
     Indication: NARCOLEPSY
     Dosage: 2.5 G, BID
     Route: 048
     Dates: start: 201211, end: 2012
  29. XYREM [Suspect]
     Active Substance: SODIUM OXYBATE
     Dosage: 4.25 G, BID
     Route: 048
     Dates: start: 201701
  30. HYDROXYCHLOROQUINE [Concomitant]
     Active Substance: HYDROXYCHLOROQUINE
  31. METHOTREXATE. [Concomitant]
     Active Substance: METHOTREXATE
  32. COLACE [Concomitant]
     Active Substance: DOCUSATE SODIUM

REACTIONS (2)
  - Somnolence [Unknown]
  - Muscle spasms [Unknown]
